FAERS Safety Report 8953111 (Version 1)
Quarter: 2012Q4

REPORT INFORMATION
  Report Type: 
  Country: GR (occurrence: GR)
  Receive Date: 20121205
  Receipt Date: 20121205
  Transmission Date: 20130627
  Serious: Yes (Other)
  Sender: FDA-Public Use
  Company Number: GR-AMGEN-GRCSP2012009911

PATIENT
  Age: 77 Year
  Sex: Female
  Weight: 69 kg

DRUGS (10)
  1. ARTICLOX [Concomitant]
     Indication: ANAEMIA
     Dosage: 1 mg, qmo
     Route: 030
     Dates: start: 2010
  2. LIPITOR [Concomitant]
     Indication: HYPERLIPIDAEMIA
     Dosage: 10 mg, UNK
     Route: 048
     Dates: start: 1997
  3. MEGA CALCIUM [Concomitant]
     Indication: OSTEOPENIA
     Dosage: 500 mg, UNK
     Route: 048
  4. ONE ALPHA [Concomitant]
     Indication: OSTEOPENIA
     Dosage: 1 mg, UNK
     Route: 048
  5. PROLIA [Suspect]
     Indication: OSTEOPOROSIS
     Dosage: 60 mg, q6mo
     Route: 058
     Dates: start: 201111
  6. HUMIRA [Suspect]
     Indication: RHEUMATOID ARTHRITIS
     Dosage: 40 mg, q2wk
     Route: 058
     Dates: end: 20111221
  7. ENBREL [Concomitant]
     Indication: RHEUMATOID ARTHRITIS
     Dosage: UNK
  8. THYROHORMONE [Concomitant]
  9. COVERSYL [Concomitant]
     Indication: HYPERTENSION
  10. SALOSPIR [Concomitant]
     Indication: PULMONARY ARTERIAL HYPERTENSION
     Dosage: 100 mg, UNK
     Route: 048
     Dates: start: 2000

REACTIONS (4)
  - Lichen planus [Recovering/Resolving]
  - Psoriasis [Recovering/Resolving]
  - Pruritus [Recovering/Resolving]
  - Urticaria [Recovering/Resolving]
